FAERS Safety Report 7654951 (Version 11)
Quarter: 2019Q2

REPORT INFORMATION
  Report Type: Report from Study
  Country: DE (occurrence: DE)
  Receive Date: 20101103
  Receipt Date: 20190626
  Transmission Date: 20190711
  Serious: Yes (Death, Hospitalization)
  Sender: FDA-Public Use
  Company Number: DE-ROCHE-737425

PATIENT
  Age: 68 Year
  Sex: Female
  Weight: 95 kg

DRUGS (8)
  1. ACIC [ACICLOVIR] [Concomitant]
     Indication: PLEURAL EFFUSION
  2. LERCANIDIPINE [Concomitant]
     Active Substance: LERCANIDIPINE
     Route: 065
     Dates: start: 20001201, end: 20100917
  3. BEVACIZUMAB. [Suspect]
     Active Substance: BEVACIZUMAB
     Indication: BREAST CANCER METASTATIC
     Dosage: LAST DOSE PRIOR TO EVENTS, 05/AUG/2010
     Route: 042
     Dates: start: 20100506
  4. TAVOR (LORAZEPAM) [Concomitant]
     Active Substance: LORAZEPAM
     Indication: DEPRESSION
     Route: 048
     Dates: start: 200803
  5. BEVACIZUMAB. [Suspect]
     Active Substance: BEVACIZUMAB
     Dosage: LAST DOSE PRIOR TO EVENTS, 05/AUG/2010
     Route: 042
     Dates: start: 20100805, end: 20100805
  6. BISOPROLOL [Concomitant]
     Active Substance: BISOPROLOL
     Route: 065
     Dates: start: 20001201, end: 20100917
  7. ACIC [ACICLOVIR] [Concomitant]
     Indication: HERPES ZOSTER
     Route: 048
     Dates: start: 20100414, end: 20100421
  8. PACLITAXEL. [Suspect]
     Active Substance: PACLITAXEL
     Indication: BREAST CANCER
     Route: 042
     Dates: start: 20100506, end: 20100819

REACTIONS (7)
  - Pleural effusion [Recovering/Resolving]
  - Respiratory failure [Fatal]
  - Pneumonia [Fatal]
  - Malignant neoplasm progression [Fatal]
  - Cerebral infarction [Recovered/Resolved]
  - Metastases to meninges [Recovered/Resolved]
  - Cerebrovascular accident [Recovered/Resolved]

NARRATIVE: CASE EVENT DATE: 20100812
